FAERS Safety Report 19484338 (Version 2)
Quarter: 2021Q3

REPORT INFORMATION
  Report Type: Spontaneous
  Country: US (occurrence: US)
  Receive Date: 20210702
  Receipt Date: 20210707
  Transmission Date: 20211014
  Serious: Yes (Life-Threatening, Hospitalization, Other)
  Sender: FDA-Public Use
  Company Number: US-UNITED THERAPEUTICS-UNT-2021-011560

PATIENT
  Sex: Female
  Weight: 65.76 kg

DRUGS (2)
  1. TYVASO [Suspect]
     Active Substance: TREPROSTINIL
     Indication: PULMONARY ARTERIAL HYPERTENSION
     Dosage: UNK
     Dates: start: 20210319
  2. TYVASO [Suspect]
     Active Substance: TREPROSTINIL
     Dosage: 18?54 ?G, QID
     Dates: start: 2021, end: 202106

REACTIONS (4)
  - Chest pain [Unknown]
  - Cardiac arrest [Unknown]
  - Dialysis hypotension [Unknown]
  - Chest discomfort [Unknown]

NARRATIVE: CASE EVENT DATE: 2021
